FAERS Safety Report 16397620 (Version 1)
Quarter: 2019Q2

REPORT INFORMATION
  Report Type: Spontaneous
  Country: FR (occurrence: FR)
  Receive Date: 20190606
  Receipt Date: 20190606
  Transmission Date: 20190711
  Serious: Yes (Other)
  Sender: FDA-Public Use
  Company Number: FR-ACCORD-131647

PATIENT
  Age: 58 Year
  Sex: Female
  Weight: 47 kg

DRUGS (3)
  1. CISPLATIN. [Suspect]
     Active Substance: CISPLATIN
     Indication: TONSIL CANCER
     Route: 042
     Dates: start: 201808, end: 201812
  2. VOTRIENT [Suspect]
     Active Substance: PAZOPANIB HYDROCHLORIDE
     Indication: TONSIL CANCER
     Dosage: STRENGTH: 400 MG
     Route: 048
     Dates: start: 20190124, end: 20190403
  3. NAVELBINE [Suspect]
     Active Substance: VINORELBINE TARTRATE
     Indication: TONSIL CANCER
     Dosage: UNSPECIFIED
     Route: 065
     Dates: start: 201808, end: 201812

REACTIONS (3)
  - Hepatocellular injury [Not Recovered/Not Resolved]
  - Cholestasis [Not Recovered/Not Resolved]
  - Hypothyroidism [Not Recovered/Not Resolved]

NARRATIVE: CASE EVENT DATE: 20190403
